FAERS Safety Report 23400296 (Version 1)
Quarter: 2024Q1

REPORT INFORMATION
  Report Type: Spontaneous
  Country: US (occurrence: US)
  Receive Date: 20240115
  Receipt Date: 20240115
  Transmission Date: 20240410
  Serious: No
  Sender: FDA-Public Use
  Company Number: US-MLMSERVICE-20231229-4745636-1

PATIENT
  Age: 23 Year
  Sex: Female
  Weight: 88 kg

DRUGS (11)
  1. METFORMIN [Suspect]
     Active Substance: METFORMIN HYDROCHLORIDE
     Indication: Type 1 diabetes mellitus
     Dosage: TITRATED
  2. METFORMIN [Suspect]
     Active Substance: METFORMIN HYDROCHLORIDE
     Dosage: EXTENDED RELEASE
  3. METFORMIN [Suspect]
     Active Substance: METFORMIN HYDROCHLORIDE
     Dosage: TITRATED
  4. METFORMIN [Suspect]
     Active Substance: METFORMIN HYDROCHLORIDE
     Dosage: TITRATED
  5. INSULIN NOS [Concomitant]
     Active Substance: INSULIN NOS
     Indication: Type 1 diabetes mellitus
     Dosage: 55.4 UNITS OF BASAL INSULIN AND 26.5 UNITS OF BOLUS PER DAY, TOTAL DAILY DOSE 81.9 UNITS
  6. INSULIN NOS [Concomitant]
     Active Substance: INSULIN NOS
     Dosage: DAILY INSULIN: 36.5 UNITS BASAL, 17.1 UNITS BOLUS (TDD: 53.6)
  7. INSULIN NOS [Concomitant]
     Active Substance: INSULIN NOS
     Dosage: DAILY INSULIN: 41.1 UNITS BASAL, 14.5 UNITS BOLUS (TDD:BOLUS (TDD:?55.3)
  8. INSULIN NOS [Concomitant]
     Active Substance: INSULIN NOS
     Dosage: 55.4 UNITS OF BASAL INSULIN AND 26.5 UNITS OF BOLUS PER DAY, TOTAL DAILY DOSE 81.9 UNITS
  9. TIRZEPATIDE [Concomitant]
     Active Substance: TIRZEPATIDE
     Indication: Type 1 diabetes mellitus
     Dosage: TITRATED ANOTHER 4 WEEKLY DOSES
     Route: 058
  10. TIRZEPATIDE [Concomitant]
     Active Substance: TIRZEPATIDE
     Dosage: TITRATED AFTER 4 WEEKS
     Route: 058
  11. TIRZEPATIDE [Concomitant]
     Active Substance: TIRZEPATIDE
     Route: 058

REACTIONS (1)
  - Nausea [Unknown]
